FAERS Safety Report 17296410 (Version 1)
Quarter: 2020Q1

REPORT INFORMATION
  Report Type: Spontaneous
  Country: FR (occurrence: FR)
  Receive Date: 20200121
  Receipt Date: 20200121
  Transmission Date: 20200409
  Serious: Yes (Hospitalization)
  Sender: FDA-Public Use
  Company Number: FR-MYLANLABS-2020M1004940

PATIENT
  Age: 55 Year
  Sex: Male
  Weight: 70 kg

DRUGS (1)
  1. QUETIAPINE. [Suspect]
     Active Substance: QUETIAPINE
     Indication: BIPOLAR DISORDER
     Dosage: 1 ? 2 CP PAR JOUR
     Route: 048
     Dates: start: 20190805, end: 20190902

REACTIONS (6)
  - Agitation [Recovered/Resolved]
  - Behaviour disorder [Recovered/Resolved]
  - Hyperbilirubinaemia [Recovered/Resolved]
  - Serum ferritin increased [Recovered/Resolved]
  - Rhabdomyolysis [Recovered/Resolved]
  - Transaminases increased [Recovered/Resolved]

NARRATIVE: CASE EVENT DATE: 20190825
